FAERS Safety Report 17605477 (Version 1)
Quarter: 2020Q1

REPORT INFORMATION
  Report Type: Spontaneous
  Country: US (occurrence: US)
  Receive Date: 20200331
  Receipt Date: 20200331
  Transmission Date: 20200409
  Serious: No
  Sender: FDA-Public Use
  Company Number: US-SA-2020SA077883

PATIENT
  Sex: Male
  Weight: 102.04 kg

DRUGS (12)
  1. EPINEPHRINE. [Concomitant]
     Active Substance: EPINEPHRINE
  2. LUMIZYME [Suspect]
     Active Substance: ALGLUCOSIDASE ALFA
     Indication: GLYCOGEN STORAGE DISORDER
     Dosage: 1800 MG, QOW
     Route: 042
     Dates: start: 20140418
  3. ALBUTEROL SULFATE. [Concomitant]
     Active Substance: ALBUTEROL SULFATE
  4. DILTIAZEM. [Concomitant]
     Active Substance: DILTIAZEM
  5. HEPARIN [Concomitant]
     Active Substance: HEPARIN SODIUM
  6. LISINOPRIL. [Concomitant]
     Active Substance: LISINOPRIL
  7. ZINC. [Concomitant]
     Active Substance: ZINC
     Route: 065
  8. PAROXETINE. [Concomitant]
     Active Substance: PAROXETINE
  9. HYDROCHLOROTHIAZIDE. [Concomitant]
     Active Substance: HYDROCHLOROTHIAZIDE
  10. ONE-A-DAY [MINERALS NOS;VITAMINS NOS] [Concomitant]
  11. DIPHENHYDRAMINE. [Concomitant]
     Active Substance: DIPHENHYDRAMINE
  12. SODIUM CHLORIDE 0.9% [Concomitant]
     Active Substance: SODIUM CHLORIDE

REACTIONS (2)
  - Influenza [Unknown]
  - Nasopharyngitis [Unknown]
